FAERS Safety Report 7270270-3 (Version None)
Quarter: 2011Q1

REPORT INFORMATION
  Report Type: 
  Country: None (occurrence: None)
  Receive Date: 20110125
  Receipt Date: 20110112
  Transmission Date: 20110831
  Serious: Yes (Other)
  Sender: FDA-Public Use
  Company Number: LTI2011A00006

PATIENT
  Age: 65 Year
  Sex: Female

DRUGS (1)
  1. ACTOS [Suspect]
     Indication: TYPE 2 DIABETES MELLITUS
     Dosage: 30MG (30 MG, 1 IN 1 D), ORAL
     Route: 048
     Dates: end: 20100101

REACTIONS (1)
  - BLADDER CANCER [None]
